FAERS Safety Report 8429256-5 (Version None)
Quarter: 2012Q2

REPORT INFORMATION
  Report Type: 
  Country: None (occurrence: None)
  Receive Date: 20120612
  Receipt Date: 20120607
  Transmission Date: 20120825
  Serious: Yes (Death, Hospitalization)
  Sender: FDA-Public Use
  Company Number: PHHY2012EC049443

PATIENT
  Age: 82 Year
  Sex: Male

DRUGS (2)
  1. QUETIAPINE [Concomitant]
     Dosage: 1 DF, DAILY
  2. EXELON [Suspect]
     Indication: DEMENTIA ALZHEIMER'S TYPE
     Dosage: 5 CM PATCH (4.6 MG/24 HOURS)
     Route: 062
     Dates: start: 20100422

REACTIONS (9)
  - DIARRHOEA [None]
  - PRODUCTIVE COUGH [None]
  - DYSPHAGIA [None]
  - SOMNOLENCE [None]
  - NAUSEA [None]
  - RESPIRATORY ARREST [None]
  - PALLOR [None]
  - ASTHENIA [None]
  - DYSPNOEA [None]
